FAERS Safety Report 14424846 (Version 1)
Quarter: 2018Q1

REPORT INFORMATION
  Report Type: Spontaneous
  Country: US (occurrence: US)
  Receive Date: 20180123
  Receipt Date: 20180123
  Transmission Date: 20180509
  Serious: No
  Sender: FDA-Public Use
  Company Number: US-OTSUKA-2017_026952

PATIENT
  Age: 8 Decade
  Sex: Male

DRUGS (1)
  1. REXULTI [Suspect]
     Active Substance: BREXPIPRAZOLE
     Indication: PRODUCT USED FOR UNKNOWN INDICATION
     Dosage: 1 MG, QD (1MG DAILY BY SPLITTING A 2MG TABLET IN HALF)
     Route: 065

REACTIONS (3)
  - Vision blurred [Unknown]
  - Wrong technique in product usage process [Unknown]
  - Somnolence [Unknown]
